FAERS Safety Report 8378044-7 (Version None)
Quarter: 2012Q2

REPORT INFORMATION
  Report Type: 
  Country: None (occurrence: None)
  Receive Date: 20120521
  Receipt Date: 20120508
  Transmission Date: 20120825
  Serious: Yes (Other)
  Sender: FDA-Public Use
  Company Number: AUR-APL-2012-02256

PATIENT
  Age: 33 Year
  Sex: Male

DRUGS (12)
  1. BECLOMETHASONE DIPROPIONATE [Concomitant]
  2. RAMIPRIL [Suspect]
     Indication: HYPERTENSION
     Dosage: 2.5 MG, 1 D; 5MG, 1 D; 10 MG, 1 D
     Dates: start: 20110822
  3. RAMIPRIL [Suspect]
     Indication: HYPERTENSION
     Dosage: 2.5 MG, 1 D; 5MG, 1 D; 10 MG, 1 D
     Dates: start: 20120302
  4. RAMIPRIL [Suspect]
     Indication: HYPERTENSION
     Dosage: 2.5 MG, 1 D; 5MG, 1 D; 10 MG, 1 D
     Dates: start: 20120306, end: 20120309
  5. PEGINTERFERON ALFA-2A [Suspect]
     Indication: HEPATITIS C
     Dosage: 180 MCG,1 WK, SUBCUTANEOUS
     Route: 058
     Dates: start: 20110516
  6. MOVICOL (MOVICOL /06309501/) [Concomitant]
  7. RIBAVIRIN [Suspect]
     Indication: HEPATITIS C
     Dosage: 1200 MG, ORAL
     Route: 048
     Dates: start: 20110516
  8. CALCICHEW D3 (LEKOVIT CA) [Concomitant]
  9. OMEPRAZOLE [Concomitant]
  10. VENLAFAXINE [Concomitant]
  11. CLOZAPINE [Suspect]
     Indication: PRODUCT USED FOR UNKNOWN INDICATION
     Dosage: ORAL; 200 MG (100 MG, 2 IN 1 D), ORAL
     Route: 048
     Dates: start: 20120319, end: 20120401
  12. CLOZAPINE [Suspect]
     Indication: PRODUCT USED FOR UNKNOWN INDICATION
     Dosage: ORAL; 200 MG (100 MG, 2 IN 1 D), ORAL
     Route: 048
     Dates: start: 20111025, end: 20120307

REACTIONS (3)
  - HYPERTENSION [None]
  - NEUTROPENIA [None]
  - HIV TEST POSITIVE [None]
